FAERS Safety Report 7564916-X (Version None)
Quarter: 2011Q2

REPORT INFORMATION
  Report Type: 
  Country: None (occurrence: None)
  Receive Date: 20110622
  Receipt Date: 20110217
  Transmission Date: 20111010
  Serious: Yes (Death)
  Sender: FDA-Public Use
  Company Number: US-MYLANLABS-2011S1003344

PATIENT
  Age: 80 Year
  Sex: Female

DRUGS (8)
  1. ALPRAZOLAM [Concomitant]
  2. LEVOTHYROXINE SODIUM [Concomitant]
  3. AMLODIPINE [Concomitant]
  4. GABAPENTIN [Concomitant]
  5. POTASSIUM [Concomitant]
  6. CLOZAPINE [Suspect]
     Route: 048
     Dates: start: 20110105
  7. LASIX [Concomitant]
  8. OMEPRAZOLE [Concomitant]

REACTIONS (1)
  - DEATH [None]
